FAERS Safety Report 9803671 (Version 1)
Quarter: 2014Q1

REPORT INFORMATION
  Report Type: Spontaneous
  Country: US (occurrence: None)
  Receive Date: 20140103
  Receipt Date: 20140103
  Transmission Date: 20141002
  Serious: Yes (Hospitalization)
  Sender: FDA-Public Use
  Company Number: 13-05433

PATIENT
  Age: 49 Year
  Sex: Male

DRUGS (2)
  1. ALBUTEROL SULFATE [Suspect]
     Indication: CHRONIC OBSTRUCTIVE PULMONARY DISEASE
     Dosage: Q4H 054
  2. IPRATROPIUM NEBULIZER [Concomitant]

REACTIONS (2)
  - Lactic acidosis [None]
  - Muscle fatigue [None]
